FAERS Safety Report 9540910 (Version 2)
Quarter: 2013Q3

REPORT INFORMATION
  Report Type: Report from Study
  Country: ID (occurrence: ID)
  Receive Date: 20130921
  Receipt Date: 20130921
  Transmission Date: 20140515
  Serious: Yes (Death)
  Sender: FDA-Public Use
  Company Number: ID-ROCHE-1277076

PATIENT
  Age: 59 Year
  Sex: Male

DRUGS (5)
  1. MABTHERA [Suspect]
     Indication: MANTLE CELL LYMPHOMA
     Dosage: 12 DRIPS/MINUTE
     Route: 042
     Dates: start: 20130911
  2. CYTARABINE [Concomitant]
     Indication: MANTLE CELL LYMPHOMA
  3. CISPLATIN [Concomitant]
     Indication: MANTLE CELL LYMPHOMA
  4. PARACETAMOL [Concomitant]
     Indication: PREMEDICATION
  5. DEXAMETHASONE [Concomitant]
     Indication: PREMEDICATION

REACTIONS (2)
  - Infusion related reaction [Recovered/Resolved]
  - Death [Fatal]
